FAERS Safety Report 24039832 (Version 1)
Quarter: 2024Q3

REPORT INFORMATION
  Report Type: Other
  Country: CN (occurrence: CN)
  Receive Date: 20240702
  Receipt Date: 20240702
  Transmission Date: 20241017
  Serious: Yes (Life-Threatening, Hospitalization, Other)
  Sender: QILU PHARMACEUTICAL
  Company Number: CN-QILU PHARMACEUTICAL (HAINAN) CO.  LTD.-QLH-000157-2024

PATIENT
  Age: 34 Year
  Sex: Male
  Weight: 60 kg

DRUGS (7)
  1. OXALIPLATIN [Suspect]
     Active Substance: OXALIPLATIN
     Indication: Hepatic cancer
     Dosage: 147 MG ONCE DAILY (QD)
     Route: 013
     Dates: start: 20240603, end: 20240603
  2. CAMRELIZUMAB [Suspect]
     Active Substance: CAMRELIZUMAB
     Indication: Hepatic cancer
     Dosage: 200 MG ONCE DAILY (QD)
     Route: 041
     Dates: start: 20240506, end: 20240506
  3. CAMRELIZUMAB [Suspect]
     Active Substance: CAMRELIZUMAB
     Dosage: 200 MG ONCE DAILY (QD)
     Route: 041
     Dates: start: 20240601, end: 20240601
  4. LEVOLEUCOVORIN CALCIUM [Suspect]
     Active Substance: LEVOLEUCOVORIN CALCIUM
     Indication: Hepatic cancer
     Dosage: 174 MG ONCE DAILY
     Route: 013
     Dates: start: 20240603, end: 20240603
  5. FLUOROURACIL [Suspect]
     Active Substance: FLUOROURACIL
     Indication: Hepatic cancer
     Dosage: 4.770 GRAMS ONCE DAILY
     Route: 013
     Dates: start: 20240603, end: 20240603
  6. FLUOROURACIL [Suspect]
     Active Substance: FLUOROURACIL
     Dosage: 0.6 GRAMS
     Route: 013
     Dates: start: 20240603, end: 20240603
  7. RIVOCERANIB [Concomitant]
     Active Substance: RIVOCERANIB
     Indication: Hepatic cancer
     Dosage: UNK
     Route: 065
     Dates: start: 20240506, end: 20240601

REACTIONS (3)
  - Cardiac failure [Recovered/Resolved]
  - Product use in unapproved indication [Unknown]
  - Product use issue [Unknown]

NARRATIVE: CASE EVENT DATE: 20240603
